FAERS Safety Report 15819685 (Version 1)
Quarter: 2019Q1

REPORT INFORMATION
  Report Type: Report from Study
  Country: NL (occurrence: NL)
  Receive Date: 20190114
  Receipt Date: 20190114
  Transmission Date: 20190417
  Serious: Yes (Hospitalization)
  Sender: FDA-Public Use
  Company Number: NL-ROCHE-2241445

PATIENT
  Age: 50 Year
  Sex: Female

DRUGS (1)
  1. CAPECITABINE. [Suspect]
     Active Substance: CAPECITABINE
     Indication: METASTASES TO LYMPH NODES
     Route: 065

REACTIONS (6)
  - Diarrhoea [Unknown]
  - Oral disorder [Unknown]
  - Hypersensitivity [Unknown]
  - Febrile neutropenia [Unknown]
  - Nausea [Unknown]
  - Leukopenia [Unknown]
